FAERS Safety Report 6429212-2 (Version None)
Quarter: 2009Q4

REPORT INFORMATION
  Report Type: 
  Country: None (occurrence: None)
  Receive Date: 20091105
  Receipt Date: 20091022
  Transmission Date: 20100525
  Serious: Yes (Other)
  Sender: FDA-Public Use
  Company Number: PHHY2009CA46138

PATIENT
  Sex: Male

DRUGS (14)
  1. CLOZARIL [Suspect]
     Indication: SCHIZOPHRENIA, DISORGANISED TYPE
     Dosage: UNK
     Dates: start: 19940101
  2. CLOZARIL [Suspect]
     Dosage: UNK
     Dates: start: 19970127
  3. EPIVAL [Concomitant]
  4. ZYPREXA [Concomitant]
  5. BUSPAR [Concomitant]
  6. LOPRESSOR [Concomitant]
  7. COLACE [Concomitant]
  8. FLOMAX [Concomitant]
  9. VITAMIN D [Concomitant]
  10. SYNTHROID [Concomitant]
  11. ACTONEL [Concomitant]
  12. MIRTAZAPINE [Concomitant]
  13. NOZINAN                                 /NET/ [Concomitant]
  14. REMERON [Concomitant]

REACTIONS (10)
  - ABSCESS LIMB [None]
  - HYPOTHYROIDISM [None]
  - INJURY [None]
  - MENTAL RETARDATION [None]
  - NEUTROPENIA [None]
  - PLATELET COUNT DECREASED [None]
  - RENAL FAILURE CHRONIC [None]
  - SEPSIS [None]
  - TOOTH DISORDER [None]
  - WHITE BLOOD CELL COUNT DECREASED [None]
